FAERS Safety Report 15968974 (Version 1)
Quarter: 2019Q1

REPORT INFORMATION
  Report Type: Spontaneous
  Country: IT (occurrence: IT)
  Receive Date: 20190215
  Receipt Date: 20190215
  Transmission Date: 20190418
  Serious: Yes (Other)
  Sender: FDA-Public Use
  Company Number: IT-MYLANLABS-2019M1013305

PATIENT
  Age: 80 Year
  Sex: Male

DRUGS (4)
  1. HALOPERIDOL. [Suspect]
     Active Substance: HALOPERIDOL
     Indication: MAJOR DEPRESSION
     Dosage: 2 MILLIGRAM, QD
  2. AMITRIPTYLINE [Suspect]
     Active Substance: AMITRIPTYLINE
     Indication: MAJOR DEPRESSION
     Dosage: 40 MILLIGRAM, QD
  3. LORAZEPAM. [Suspect]
     Active Substance: LORAZEPAM
     Indication: MAJOR DEPRESSION
     Dosage: 2 MILLIGRAM, QD
  4. ORPHENADRINE [Suspect]
     Active Substance: ORPHENADRINE
     Indication: MAJOR DEPRESSION
     Dosage: 100 MILLIGRAM, QD

REACTIONS (8)
  - Confusional state [Recovered/Resolved]
  - Hallucination [Recovered/Resolved]
  - Insomnia [Recovered/Resolved]
  - Delirium [Recovered/Resolved]
  - Agitation [Recovered/Resolved]
  - Persecutory delusion [Recovered/Resolved]
  - Condition aggravated [Recovered/Resolved]
  - Sedation [Recovered/Resolved]
